FAERS Safety Report 8811443 (Version 1)
Quarter: 2012Q4

REPORT INFORMATION
  Report Type: Spontaneous
  Country: US (occurrence: None)
  Receive Date: 20120921
  Receipt Date: 20120921
  Transmission Date: 20130627
  Serious: Yes (Hospitalization)
  Sender: FDA-Public Use
  Company Number: DKLU1084594

PATIENT
  Age: 11 Month
  Sex: Male

DRUGS (1)
  1. SABRIL [Suspect]
     Route: 048
     Dates: start: 20120606

REACTIONS (1)
  - Hospitalisation [None]
